FAERS Safety Report 22264435 (Version 1)
Quarter: 2023Q2

REPORT INFORMATION
  Report Type: Spontaneous
  Country: US (occurrence: None)
  Receive Date: 20230427
  Receipt Date: 20230427
  Transmission Date: 20230721
  Serious: No
  Sender: FDA-Public Use
  Company Number: None

PATIENT
  Age: 58 Year
  Sex: Female
  Weight: 88.2 kg

DRUGS (6)
  1. OCTAGAM IMMUNE GLOBULIN (HUMAN) [Suspect]
     Active Substance: HUMAN IMMUNOGLOBULIN G
     Indication: Chronic inflammatory demyelinating polyradiculoneuropathy
     Route: 042
  2. ONDANSETRON [Concomitant]
     Active Substance: ONDANSETRON
  3. Diphenhydramine 50MG IV [Concomitant]
  4. Ketorolac 30MG IV [Concomitant]
  5. SODIUM CHLORIDE [Concomitant]
     Active Substance: SODIUM CHLORIDE
  6. Acetaminophen 325MG ORAL [Concomitant]

REACTIONS (7)
  - Chronic inflammatory demyelinating polyradiculoneuropathy [None]
  - Condition aggravated [None]
  - Pain [None]
  - Asthenia [None]
  - Migraine [None]
  - Infusion related reaction [None]
  - Musculoskeletal stiffness [None]
